FAERS Safety Report 8137905-4 (Version None)
Quarter: 2012Q1

REPORT INFORMATION
  Report Type: 
  Country: None (occurrence: None)
  Receive Date: 20120103
  Receipt Date: 20110906
  Transmission Date: 20120608
  Serious: No
  Sender: FDA-Public Use
  Company Number: AE-2011-001353

PATIENT
  Sex: Male

DRUGS (6)
  1. INTERFERON [Concomitant]
  2. RIBAVIRIN [Concomitant]
  3. INCIVEK [Suspect]
     Dosage: 2250 MG (750 MG, 3 IN 1 D), ORAL
     Route: 048
     Dates: start: 20110902
  4. VIMOVO (NAPROXEN) [Concomitant]
  5. FENOFIBRATE [Concomitant]
  6. LEXAPRO [Concomitant]

REACTIONS (2)
  - NAUSEA [None]
  - SINUS HEADACHE [None]
